FAERS Safety Report 10031923 (Version 1)
Quarter: 2014Q1

REPORT INFORMATION
  Report Type: Spontaneous
  Country: FR (occurrence: FR)
  Receive Date: 20140324
  Receipt Date: 20140324
  Transmission Date: 20141002
  Serious: Yes (Hospitalization)
  Sender: FDA-Public Use
  Company Number: FR-TEVA-469811ISR

PATIENT
  Age: 4 Year
  Sex: Male
  Weight: 18 kg

DRUGS (2)
  1. METHOTREXATE TEVA [Suspect]
     Indication: OSTEOSARCOMA
     Dosage: 11 GRAM DAILY;
     Route: 042
     Dates: start: 20131203, end: 20131203
  2. METHOTREXATE TEVA [Suspect]
     Dosage: 11 GRAM DAILY;
     Route: 042
     Dates: start: 20140221, end: 20140221

REACTIONS (4)
  - Transaminases increased [Recovered/Resolved]
  - Prothrombin time ratio decreased [Not Recovered/Not Resolved]
  - Coagulation test abnormal [Not Recovered/Not Resolved]
  - White blood cell count decreased [Unknown]
